FAERS Safety Report 6696031-1 (Version None)
Quarter: 2010Q2

REPORT INFORMATION
  Report Type: 
  Country: None (occurrence: None)
  Receive Date: 20100426
  Receipt Date: 20100413
  Transmission Date: 20101027
  Serious: Yes (Other)
  Sender: FDA-Public Use
  Company Number: PHEH2008US03143

PATIENT
  Sex: Male

DRUGS (25)
  1. ZOMETA [Suspect]
     Dosage: 4MG
     Dates: start: 20050715, end: 20070103
  2. LUPRON [Concomitant]
  3. CASODEX [Concomitant]
  4. DECADRON #1 [Concomitant]
     Dosage: 10MG
     Dates: start: 20060207
  5. ZOFRAN [Concomitant]
     Dosage: 4MG
     Route: 040
     Dates: start: 20061106
  6. AMOXICILLIN [Concomitant]
     Dosage: UNK
     Dates: start: 20071001
  7. PERIDEX [Concomitant]
     Dosage: UNK / DAILY
     Dates: start: 20071001
  8. NEXIUM [Concomitant]
  9. HYZAAR [Concomitant]
  10. ATENOLOL [Concomitant]
  11. OXYBUTYNIN CHLORIDE [Concomitant]
  12. CELEBREX [Concomitant]
  13. DOXYCYCLINE [Concomitant]
  14. ADVICOR [Concomitant]
  15. DOXAZOSIN [Concomitant]
  16. VERELAN [Concomitant]
  17. ZYRTEC [Concomitant]
  18. DITROPAN XL [Concomitant]
  19. MEGESTROL ACETATE [Concomitant]
  20. OMEPRAZOLE [Concomitant]
  21. FEXOFENADINE [Concomitant]
  22. DETROL                                  /USA/ [Concomitant]
  23. ASPIRIN [Concomitant]
  24. LASIX [Concomitant]
  25. QUININE SULFATE [Concomitant]

REACTIONS (65)
  - ANXIETY [None]
  - AORTIC ARTERIOSCLEROSIS [None]
  - ARTHRALGIA [None]
  - BACK PAIN [None]
  - BASAL GANGLIA INFARCTION [None]
  - BLOOD ALKALINE PHOSPHATASE INCREASED [None]
  - BLOOD CREATININE INCREASED [None]
  - BLOOD UREA INCREASED [None]
  - BONE DISORDER [None]
  - BONE EROSION [None]
  - BONE FORMATION INCREASED [None]
  - BONE PAIN [None]
  - BREATH ODOUR [None]
  - CEREBRAL ATROPHY [None]
  - CONSTIPATION [None]
  - COUGH [None]
  - DENTAL CLEANING [None]
  - DENTAL PROSTHESIS PLACEMENT [None]
  - DIVERTICULUM INTESTINAL [None]
  - DYSPEPSIA [None]
  - DYSPHONIA [None]
  - DYSPNOEA EXERTIONAL [None]
  - EMOTIONAL DISTRESS [None]
  - FATIGUE [None]
  - GASTROOESOPHAGEAL REFLUX DISEASE [None]
  - GLOSSODYNIA [None]
  - GYNAECOMASTIA [None]
  - HAEMATOCRIT DECREASED [None]
  - HAEMOGLOBIN DECREASED [None]
  - HEADACHE [None]
  - HEARING IMPAIRED [None]
  - HERPES ZOSTER [None]
  - HYPOAESTHESIA [None]
  - INCREASED UPPER AIRWAY SECRETION [None]
  - INFECTION [None]
  - INJURY [None]
  - INSOMNIA [None]
  - INTERVERTEBRAL DISC PROTRUSION [None]
  - LOOSE TOOTH [None]
  - METASTASES TO BONE [None]
  - MICTURITION URGENCY [None]
  - MOUTH ULCERATION [None]
  - MUSCLE SPASMS [None]
  - MUSCULOSKELETAL DISCOMFORT [None]
  - NASAL CONGESTION [None]
  - NEPHROLITHIASIS [None]
  - NOCTURIA [None]
  - OSTEOARTHRITIS [None]
  - OSTEONECROSIS [None]
  - PAIN [None]
  - PAIN IN JAW [None]
  - PARAESTHESIA [None]
  - PERIPHERAL VASCULAR DISORDER [None]
  - PHYSICAL DISABILITY [None]
  - PROSTATIC SPECIFIC ANTIGEN INCREASED [None]
  - PULMONARY HYPERTENSION [None]
  - RED BLOOD CELL COUNT DECREASED [None]
  - RHINITIS ALLERGIC [None]
  - SCAR [None]
  - SINUSITIS [None]
  - SUBDURAL HAEMATOMA [None]
  - TONGUE ULCERATION [None]
  - URINARY INCONTINENCE [None]
  - URINARY TRACT INFECTION [None]
  - URINE ABNORMALITY [None]
